FAERS Safety Report 9676278 (Version 1)
Quarter: 2013Q4

REPORT INFORMATION
  Report Type: Spontaneous
  Country: US (occurrence: None)
  Receive Date: 20131106
  Receipt Date: 20131106
  Transmission Date: 20140711
  Serious: Yes (Other)
  Sender: FDA-Public Use
  Company Number: PR-AE13-001358

PATIENT
  Age: 42 Year
  Sex: Female

DRUGS (5)
  1. GOODY^S ORANGE [Suspect]
     Route: 048
  2. DEPAKOTE [Concomitant]
  3. PRAVASTATIN [Concomitant]
  4. FLURAZEPAM [Concomitant]
  5. DICLOFENAC (NSAID) [Concomitant]

REACTIONS (2)
  - Wrong technique in drug usage process [None]
  - Gastric perforation [None]
